FAERS Safety Report 9680334 (Version 1)
Quarter: 2013Q4

REPORT INFORMATION
  Report Type: Spontaneous
  Country: FR (occurrence: FR)
  Receive Date: 20131111
  Receipt Date: 20131111
  Transmission Date: 20140711
  Serious: Yes (Hospitalization)
  Sender: FDA-Public Use
  Company Number: FR-BRISTOL-MYERS SQUIBB COMPANY-19757178

PATIENT
  Age: 36 Year
  Sex: Male

DRUGS (3)
  1. REYATAZ [Suspect]
     Indication: HIV INFECTION
     Route: 048
     Dates: start: 20130611, end: 20130929
  2. NORVIR [Suspect]
     Indication: HIV INFECTION
     Dates: start: 20130611, end: 20131002
  3. TRUVADA [Suspect]
     Indication: HIV INFECTION
     Dosage: 1 DF:EMTRICITABINE 200 MG, TENOFOVIR 245 MG
     Route: 048
     Dates: start: 20130611, end: 20130929

REACTIONS (2)
  - Pyelonephritis [Recovered/Resolved]
  - Nephrolithiasis [Recovered/Resolved]
